FAERS Safety Report 10472414 (Version 2)
Quarter: 2014Q3

REPORT INFORMATION
  Report Type: Spontaneous
  Country: US (occurrence: None)
  Receive Date: 20140922
  Receipt Date: 20140925
  Transmission Date: 20150326
  Serious: Yes (Other)
  Sender: FDA-Public Use
  Company Number: 2014US003695

PATIENT
  Age: 65 Year
  Sex: Female
  Weight: 90.1 kg

DRUGS (2)
  1. ASPIRIN (ASPIRIN) [Concomitant]
     Active Substance: ASPIRIN
  2. ICLUSIG [Suspect]
     Active Substance: PONATINIB
     Indication: CHRONIC MYELOID LEUKAEMIA
     Route: 048
     Dates: start: 20140823, end: 20140830

REACTIONS (6)
  - Discomfort [None]
  - Hypertension [None]
  - Eye disorder [None]
  - Fatigue [None]
  - Eye haemorrhage [None]
  - Peripheral swelling [None]

NARRATIVE: CASE EVENT DATE: 20140823
